FAERS Safety Report 7065291-X (Version None)
Quarter: 2010Q4

REPORT INFORMATION
  Report Type: 
  Country: None (occurrence: None)
  Receive Date: 20101027
  Receipt Date: 20101013
  Transmission Date: 20110411
  Serious: Yes (Other)
  Sender: FDA-Public Use
  Company Number: US-MERCK-1006USA01088

PATIENT
  Age: 81 Year
  Sex: Female
  Weight: 56 kg

DRUGS (9)
  1. PRINIVIL [Suspect]
     Indication: HYPERTENSION
     Route: 048
     Dates: start: 20040101, end: 20100401
  2. PRINIVIL [Suspect]
     Route: 048
     Dates: start: 20100401, end: 20100419
  3. CATAPRES [Suspect]
     Indication: HYPERTENSION
     Route: 065
  4. CLONIDINE HYDROCHLORIDE [Suspect]
     Indication: HYPERTENSION
     Route: 048
     Dates: start: 20070101
  5. FUROSEMIDE [Concomitant]
     Route: 065
  6. MINOXIDIL [Concomitant]
     Route: 065
  7. NEXIUM [Concomitant]
     Route: 065
  8. RANITIDINE [Concomitant]
     Route: 065
     Dates: start: 20090101
  9. DILTIAZEM HYDROCHLORIDE [Concomitant]
     Route: 065

REACTIONS (3)
  - BLOOD PRESSURE SYSTOLIC INCREASED [None]
  - GASTROOESOPHAGEAL REFLUX DISEASE [None]
  - RENAL FAILURE CHRONIC [None]
